FAERS Safety Report 10253363 (Version 1)
Quarter: 2014Q2

REPORT INFORMATION
  Report Type: Spontaneous
  Country: US (occurrence: US)
  Receive Date: 20140623
  Receipt Date: 20140623
  Transmission Date: 20141212
  Serious: No
  Sender: FDA-Public Use
  Company Number: US-SHIONOGI, INC-2014000413

PATIENT
  Age: 49 Year
  Sex: Female

DRUGS (1)
  1. OSPHENA [Suspect]
     Indication: DYSPAREUNIA
     Dosage: 60 MG, QD
     Route: 048
     Dates: start: 20140321, end: 201403

REACTIONS (3)
  - Feeling abnormal [Unknown]
  - Hot flush [Recovering/Resolving]
  - Muscle spasms [Unknown]
